FAERS Safety Report 19623517 (Version 1)
Quarter: 2021Q3

REPORT INFORMATION
  Report Type: Spontaneous
  Country: GB (occurrence: GB)
  Receive Date: 20210728
  Receipt Date: 20210728
  Transmission Date: 20211014
  Serious: Yes (Other)
  Sender: FDA-Public Use
  Company Number: GB-MYLANLABS-2021M1046173

PATIENT
  Age: 68 Year
  Sex: Female
  Weight: 63 kg

DRUGS (10)
  1. AMLODIPINE [Suspect]
     Active Substance: AMLODIPINE BESYLATE
     Indication: PRODUCT USED FOR UNKNOWN INDICATION
     Dosage: 5 MILLIGRAM, QD
     Dates: start: 20210430
  2. LAXIDO [Concomitant]
     Active Substance: POLYETHYLENE GLYCOL 3350\POTASSIUM CHLORIDE\SODIUM BICARBONATE\SODIUM CHLORIDE
     Dosage: UNK (ONE TO BE TAKEN ONCE OR TWICE DAILY DISSOLVED I)
     Dates: start: 20201103, end: 20210526
  3. QUETIAPINE. [Concomitant]
     Active Substance: QUETIAPINE
     Dosage: 1 DOSAGE FORM, QD (NIGHT)
     Dates: start: 20190618
  4. ACCRETE D3 [Concomitant]
     Active Substance: CALCIUM CARBONATE\CHOLECALCIFEROL
     Dosage: 1 DOSAGE FORM, BID
     Dates: start: 20200221
  5. LAMOTRIGINE. [Concomitant]
     Active Substance: LAMOTRIGINE
     Dosage: 1 DOSAGE FORM, QD
     Dates: start: 20181127
  6. OMEPRAZOLE. [Concomitant]
     Active Substance: OMEPRAZOLE
     Dosage: 1 DOSAGE FORM, QD
     Dates: start: 20181127
  7. SENNA                              /00142201/ [Concomitant]
     Active Substance: SENNA LEAF
     Dosage: UNK (TAKE 1 OR 2 AT NIGHT WHEN NEEDED)
     Dates: start: 20210520
  8. EPILIM [Concomitant]
     Active Substance: VALPROATE SODIUM
     Dosage: 1 DOSAGE FORM, BID (MORNING AND NIGHT)
     Dates: start: 20181127
  9. CODEINE PHOSPHATE [Concomitant]
     Active Substance: CODEINE PHOSPHATE
     Dosage: 1 DOSAGE FORM, PRN (UP TO 4 TIMES A DAY)
     Dates: start: 20191030
  10. MELOXICAM. [Concomitant]
     Active Substance: MELOXICAM
     Dosage: 1 DOSAGE FORM, QD
     Dates: start: 20181127

REACTIONS (3)
  - Balance disorder [Recovered/Resolved]
  - Diplopia [Recovered/Resolved]
  - Hallucinations, mixed [Recovered/Resolved]

NARRATIVE: CASE EVENT DATE: 20210716
